FAERS Safety Report 13041366 (Version 1)
Quarter: 2016Q4

REPORT INFORMATION
  Report Type: Spontaneous
  Country: US (occurrence: US)
  Receive Date: 20161219
  Receipt Date: 20161219
  Transmission Date: 20170207
  Serious: Yes (Other)
  Sender: FDA-Public Use
  Company Number: US-ROCHE-1061403

PATIENT
  Sex: Male
  Weight: 103.97 kg

DRUGS (4)
  1. ZELBORAF [Suspect]
     Active Substance: VEMURAFENIB
     Indication: MALIGNANT MELANOMA
     Route: 048
  2. WARFARIN [Concomitant]
     Active Substance: WARFARIN
  3. MS CONTIN [Concomitant]
     Active Substance: MORPHINE SULFATE
  4. COMPAZINE [Concomitant]
     Active Substance: PROCHLORPERAZINE MALEATE
     Indication: NAUSEA
     Dosage: AS NEEDED
     Route: 048

REACTIONS (15)
  - Myalgia [Unknown]
  - Pruritus [Unknown]
  - Decreased appetite [Unknown]
  - Arthralgia [Unknown]
  - Blister [Unknown]
  - Swelling [Unknown]
  - Rash [Unknown]
  - Vomiting [Unknown]
  - Mass [Unknown]
  - Dysgeusia [Unknown]
  - Sunburn [Unknown]
  - Diarrhoea [Unknown]
  - Squamous cell carcinoma [Not Recovered/Not Resolved]
  - Nausea [Unknown]
  - Fatigue [Unknown]
